FAERS Safety Report 21688453 (Version 2)
Quarter: 2022Q4

REPORT INFORMATION
  Report Type: Report from Study
  Country: CA (occurrence: CA)
  Receive Date: 20221206
  Receipt Date: 20221216
  Transmission Date: 20230113
  Serious: Yes (Other)
  Sender: FDA-Public Use
  Company Number: CA-AMGEN-CANSL2022206787

PATIENT
  Age: 15 Year
  Sex: Female

DRUGS (2)
  1. ADALIMUMAB [Suspect]
     Active Substance: ADALIMUMAB
     Indication: Juvenile idiopathic arthritis
     Dosage: 40 MILLIGRAM, Q2WK
     Route: 065
     Dates: start: 20211005
  2. ADALIMUMAB [Suspect]
     Active Substance: ADALIMUMAB
     Dosage: 40 MILLIGRAM, Q2WK
     Route: 065

REACTIONS (17)
  - Seizure [Unknown]
  - Dizziness [Unknown]
  - Hypersomnia [Unknown]
  - Irritability [Unknown]
  - Feeling abnormal [Unknown]
  - Skin abrasion [Unknown]
  - Hypotension [Unknown]
  - Fatigue [Unknown]
  - Asthenia [Unknown]
  - Contusion [Unknown]
  - Headache [Unknown]
  - Vomiting [Unknown]
  - Fear of injection [Unknown]
  - Agitation [Unknown]
  - Concussion [Unknown]
  - Fall [Unknown]
  - Skin swelling [Unknown]

NARRATIVE: CASE EVENT DATE: 20221125
